FAERS Safety Report 21442086 (Version 1)
Quarter: 2022Q4

REPORT INFORMATION
  Report Type: Spontaneous
  Country: US (occurrence: US)
  Receive Date: 20221011
  Receipt Date: 20221011
  Transmission Date: 20230113
  Serious: No
  Sender: FDA-Public Use
  Company Number: US-Sprout Pharmaceuticals, Inc.-2022SP000063

PATIENT
  Age: 47 Year
  Sex: Female
  Weight: 72.640 kg

DRUGS (2)
  1. ADDYI [Suspect]
     Active Substance: FLIBANSERIN
     Indication: Loss of libido
     Dosage: BEFORE BEDTIME
     Route: 048
     Dates: start: 20220207, end: 20220213
  2. ADDYI [Suspect]
     Active Substance: FLIBANSERIN
     Dosage: BEFORE BEDTIME
     Route: 048
     Dates: start: 20220214, end: 20220217

REACTIONS (3)
  - Dermatitis allergic [Recovering/Resolving]
  - Intentional dose omission [Recovered/Resolved]
  - Rash [Recovering/Resolving]

NARRATIVE: CASE EVENT DATE: 20220213
